FAERS Safety Report 26000077 (Version 1)
Quarter: 2025Q4

REPORT INFORMATION
  Report Type: Spontaneous
  Country: GB (occurrence: GB)
  Receive Date: 20251105
  Receipt Date: 20251105
  Transmission Date: 20260117
  Serious: Yes (Other)
  Sender: RANBAXY
  Company Number: GB-MHRA-MIDB-d5ba9d55-9195-4e24-8e24-da310433e44e

PATIENT
  Age: 44 Year
  Sex: Male

DRUGS (1)
  1. LANSOPRAZOLE [Suspect]
     Active Substance: LANSOPRAZOLE
     Indication: Product used for unknown indication
     Dosage: 15 MILLIGRAM, BID
     Route: 048
     Dates: start: 20250616

REACTIONS (4)
  - Glaucoma [Unknown]
  - Dry eye [Unknown]
  - Vision blurred [Unknown]
  - Ocular discomfort [Unknown]

NARRATIVE: CASE EVENT DATE: 20251010
